FAERS Safety Report 4589520-7 (Version None)
Quarter: 2005Q1

REPORT INFORMATION
  Report Type: 
  Country: None (occurrence: None)
  Receive Date: 20050216
  Receipt Date: 20050203
  Transmission Date: 20050727
  Serious: Yes (Hospitalization)
  Sender: FDA-Public Use
  Company Number: 211841

PATIENT
  Age: 38 Year
  Sex: Female
  Weight: 58 kg

DRUGS (8)
  1. MABTHERA (RITUXIMAB) CONC FOR SOLUTION FOR INFUSION, 100 MG [Suspect]
     Dosage: 600 MG, INTRAVENOUS
     Route: 042
     Dates: start: 20041115, end: 20041122
  2. RULID (ROXITHROMYCIN) [Suspect]
     Indication: PYREXIA
     Dosage: 300 MG, QD, ORAL
     Route: 048
     Dates: start: 20041125, end: 20041201
  3. CELLCEPT [Concomitant]
  4. VALACYCLOVIR HCL [Concomitant]
  5. PREDNISONE TAB [Concomitant]
  6. OMEPRAZOLE [Concomitant]
  7. ORACILLINE (PENICILLIN V) [Concomitant]
  8. ATARAX [Concomitant]

REACTIONS (6)
  - AGRANULOCYTOSIS [None]
  - CELLULITIS [None]
  - GRAFT VERSUS HOST DISEASE [None]
  - HEPATITIS B [None]
  - PRODUCTIVE COUGH [None]
  - PSEUDOMONAL SEPSIS [None]
